FAERS Safety Report 8181009 (Version 5)
Quarter: 2013Q2

REPORT INFORMATION
  Report Type: Spontaneous
  Country: US (occurrence: US)
  Receive Date: 20111014
  Receipt Date: 20130619
  Transmission Date: 20140414
  Serious: Yes (Death, Hospitalization, Congenital Anomaly, Other)
  Sender: FDA-Public Use
  Company Number: US-PFIZER INC-2011243467

PATIENT
  Sex: Male
  Weight: 1.4 kg

DRUGS (2)
  1. ZOLOFT [Suspect]
     Dosage: HALF TABLET, UNK
     Route: 064
     Dates: start: 19970225
  2. PRENATAL VITAMINS [Concomitant]
     Dosage: UNK
     Route: 064

REACTIONS (11)
  - Maternal exposure timing unspecified [Fatal]
  - Cardiac arrest [Fatal]
  - Meningocele [Unknown]
  - Kyphosis [Unknown]
  - Spina bifida [Unknown]
  - Trisomy 21 [Unknown]
  - Foetal growth restriction [Unknown]
  - Cerebral ventricle dilatation [Unknown]
  - Congenital anomaly [Unknown]
  - Hydrocele [Unknown]
  - Premature baby [Unknown]
